FAERS Safety Report 21373659 (Version 1)
Quarter: 2022Q3

REPORT INFORMATION
  Report Type: Spontaneous
  Country: ES (occurrence: ES)
  Receive Date: 20220926
  Receipt Date: 20220926
  Transmission Date: 20221027
  Serious: Yes (Death, Hospitalization, Other)
  Sender: FDA-Public Use
  Company Number: ES-BAXTER-2022BAX019235

PATIENT
  Age: 70 Year
  Sex: Male

DRUGS (11)
  1. PREDNISOLONE [Suspect]
     Active Substance: PREDNISOLONE
     Indication: Mantle cell lymphoma stage IV
     Dosage: 1ST LINE CHEMOTHERAPY, R-CHOP REGIMEN, 6 CYCLES
     Route: 065
  2. PREDNISOLONE [Suspect]
     Active Substance: PREDNISOLONE
     Dosage: UNK
  3. CYTARABINE [Suspect]
     Active Substance: CYTARABINE
     Indication: Disease progression
     Dosage: UNK, RESCUE TREATMENT WITH POLYCHEMOTHERAPY, R-BAC REGIMEN
     Route: 065
  4. CYTARABINE [Suspect]
     Active Substance: CYTARABINE
     Indication: Mantle cell lymphoma stage IV
  5. RITUXIMAB [Suspect]
     Active Substance: RITUXIMAB
     Indication: Disease progression
     Dosage: UNK, RESCUE TREATMENT WITH POLYCHEMOTHERAPY, R-BAC REGIMEN
     Route: 065
     Dates: start: 2022
  6. RITUXIMAB [Suspect]
     Active Substance: RITUXIMAB
     Indication: Mantle cell lymphoma stage IV
     Dosage: 1ST LINE CHEMOTHERAPY, R-CHOP REGIMEN, 6 CYCLES
     Route: 065
  7. BENDAMUSTINE [Suspect]
     Active Substance: BENDAMUSTINE
     Indication: Disease progression
     Dosage: UNK, RESCUE TREATMENT WITH POLYCHEMOTHERAPY, R-BAC REGIMEN
     Route: 065
  8. BENDAMUSTINE [Suspect]
     Active Substance: BENDAMUSTINE
     Indication: Mantle cell lymphoma stage IV
  9. DOXORUBICIN [Suspect]
     Active Substance: DOXORUBICIN
     Indication: Mantle cell lymphoma stage IV
     Dosage: 1ST LINE CHEMOTHERAPY, R-CHOP REGIMEN, 6 CYCLES
     Route: 065
  10. CYCLOPHOSPHAMIDE [Suspect]
     Active Substance: CYCLOPHOSPHAMIDE
     Indication: Mantle cell lymphoma stage IV
     Dosage: 1ST LINE CHEMOTHERAPY, R-CHOP REGIMEN, 6 CYCLES
     Route: 065
  11. VINCRISTINE [Suspect]
     Active Substance: VINCRISTINE
     Indication: Mantle cell lymphoma stage IV
     Dosage: 1ST LINE CHEMOTHERAPY, R-CHOP REGIMEN, 6 CYCLES
     Route: 065

REACTIONS (16)
  - Disease progression [Fatal]
  - Pneumonia [Fatal]
  - Pleural effusion [Fatal]
  - Neuroendocrine carcinoma of the skin [Fatal]
  - Neoplasm progression [Fatal]
  - General physical health deterioration [Fatal]
  - Cardiac failure [Unknown]
  - Pleural effusion [Recovered/Resolved]
  - Urethral obstruction [Unknown]
  - Pathogen resistance [Recovered/Resolved]
  - Hydronephrosis [Unknown]
  - Pneumonia pseudomonal [Recovered/Resolved]
  - Scrotal oedema [Not Recovered/Not Resolved]
  - Nodule [Unknown]
  - Aplasia [Unknown]
  - Back pain [Unknown]
